FAERS Safety Report 15563200 (Version 5)
Quarter: 2018Q4

REPORT INFORMATION
  Report Type: Spontaneous
  Country: US (occurrence: US)
  Receive Date: 20181029
  Receipt Date: 20181126
  Transmission Date: 20190205
  Serious: Yes (Hospitalization)
  Sender: FDA-Public Use
  Company Number: US-IMPAX LABORATORIES, INC-2018-IPXL-03508

PATIENT
  Age: 75 Year
  Sex: Male

DRUGS (3)
  1. RYTARY [Suspect]
     Active Substance: CARBIDOPA\LEVODOPA
     Dosage: 23.75/95 MG, FOUR CAPSULES, THREE TIMES A DAY
     Route: 048
     Dates: start: 20181031
  2. CARBIDOPA/LEVODOPA [Concomitant]
     Active Substance: CARBIDOPA\LEVODOPA
     Indication: PARKINSON^S DISEASE
     Dosage: 25/100 MG, UNK
     Route: 065
  3. RYTARY [Suspect]
     Active Substance: CARBIDOPA\LEVODOPA
     Indication: PARKINSON^S DISEASE
     Dosage: 23.75/95 MG, FOUR CAPSULES, THREE TIMES A DAY
     Route: 048
     Dates: start: 20181002, end: 20181017

REACTIONS (7)
  - Hyponatraemia [Recovering/Resolving]
  - Rash [Unknown]
  - Blood potassium decreased [Recovering/Resolving]
  - Therapy cessation [Recovered/Resolved]
  - Akinesia [Recovering/Resolving]
  - Parkinson^s disease [Recovering/Resolving]
  - Asthenia [Recovering/Resolving]

NARRATIVE: CASE EVENT DATE: 2018
